FAERS Safety Report 6600712-5 (Version None)
Quarter: 2010Q1

REPORT INFORMATION
  Report Type: 
  Country: None (occurrence: None)
  Receive Date: 20100223
  Receipt Date: 20100223
  Transmission Date: 20100710
  Serious: Yes (Life-Threatening, Disabling, Other)
  Sender: FDA-Public Use
  Company Number: None

PATIENT
  Age: 56 Year
  Sex: Male
  Weight: 70.3075 kg

DRUGS (1)
  1. REMICADE [Suspect]
     Indication: CROHN'S DISEASE
     Dosage: 800 ML 2-6-8 WKS IV
     Route: 042
     Dates: end: 20091118

REACTIONS (3)
  - ARTHRALGIA [None]
  - JOINT SWELLING [None]
  - LUPUS-LIKE SYNDROME [None]
